FAERS Safety Report 4456300-2 (Version None)
Quarter: 2004Q3

REPORT INFORMATION
  Report Type: 
  Country: None (occurrence: None)
  Receive Date: 20040922
  Receipt Date: 20040913
  Transmission Date: 20050211
  Serious: Yes (Other)
  Sender: FDA-Public Use
  Company Number: PT-MERCK-0409PRT00012

PATIENT
  Age: 46 Year
  Sex: Female

DRUGS (3)
  1. ACARBOSE [Concomitant]
     Indication: DIABETES MELLITUS
     Route: 048
  2. VIOXX [Suspect]
     Indication: BACK PAIN
     Route: 048
  3. TERBINAFINE [Concomitant]
     Route: 048

REACTIONS (2)
  - DIABETES MELLITUS INADEQUATE CONTROL [None]
  - HEPATOSPLENOMEGALY [None]
